FAERS Safety Report 5324260-8 (Version None)
Quarter: 2007Q2

REPORT INFORMATION
  Report Type: 
  Country: None (occurrence: None)
  Receive Date: 20070514
  Receipt Date: 20070502
  Transmission Date: 20071010
  Serious: Yes (Other)
  Sender: FDA-Public Use
  Company Number: DE-SHR-DE-2007-015980

PATIENT
  Sex: Male

DRUGS (5)
  1. MAGNEVIST [Suspect]
     Dosage: 41 ML, 1 DOSE
     Dates: start: 20050608, end: 20050608
  2. MAGNEVIST [Suspect]
     Dosage: 19 ML, 1 DOSE
     Dates: start: 20051116, end: 20051116
  3. OMNISCAN [Suspect]
     Dosage: 30 ML, 1 DOSE
     Route: 042
     Dates: start: 20050420, end: 20050420
  4. OMNISCAN [Suspect]
     Dosage: 32 ML, 1 DOSE
     Dates: start: 20051110, end: 20051110
  5. OMNISCAN [Suspect]
     Dosage: 45 ML, 1 DOSE
     Dates: start: 20060809, end: 20060809

REACTIONS (1)
  - NEPHROGENIC FIBROSING DERMOPATHY [None]
